FAERS Safety Report 8287225-2 (Version None)
Quarter: 2012Q2

REPORT INFORMATION
  Report Type: 
  Country: None (occurrence: None)
  Receive Date: 20120416
  Receipt Date: 20120410
  Transmission Date: 20120825
  Serious: Yes (Other)
  Sender: FDA-Public Use
  Company Number: FR-TEVA-330992ISR

PATIENT
  Sex: Male

DRUGS (1)
  1. CEFTRIAXONE [Suspect]
     Dosage: 1 GRAM;
     Route: 042
     Dates: start: 20120301, end: 20120301

REACTIONS (3)
  - BURNING SENSATION [None]
  - MALAISE [None]
  - PAIN [None]
